FAERS Safety Report 13426570 (Version 1)
Quarter: 2017Q2

REPORT INFORMATION
  Report Type: Spontaneous
  Country: US (occurrence: US)
  Receive Date: 20170411
  Receipt Date: 20170411
  Transmission Date: 20170830
  Serious: Yes (Hospitalization, Other)
  Sender: FDA-Public Use
  Company Number: US-ZYDUS-014520

PATIENT
  Age: 74 Year
  Sex: Female

DRUGS (1)
  1. METFORMIN [Suspect]
     Active Substance: METFORMIN HYDROCHLORIDE
     Indication: PRODUCT USED FOR UNKNOWN INDICATION
     Route: 065

REACTIONS (12)
  - Dysuria [Unknown]
  - Diverticulum intestinal [Unknown]
  - Blood creatinine increased [Recovered/Resolved]
  - Back pain [Recovering/Resolving]
  - Vomiting [Unknown]
  - Hypotension [Unknown]
  - Lactic acidosis [Unknown]
  - Diarrhoea [Unknown]
  - Nausea [Unknown]
  - Hypokinesia [Unknown]
  - Acute kidney injury [Unknown]
  - Abdominal pain [Recovering/Resolving]
